FAERS Safety Report 25788763 (Version 1)
Quarter: 2025Q3

REPORT INFORMATION
  Report Type: Report from Study
  Country: US (occurrence: US)
  Receive Date: 20250910
  Receipt Date: 20250910
  Transmission Date: 20251020
  Serious: Yes (Other)
  Sender: ABBVIE
  Company Number: US-ABBVIE-6451495

PATIENT
  Sex: Female

DRUGS (1)
  1. CREON [Suspect]
     Active Substance: PANCRELIPASE AMYLASE\PANCRELIPASE LIPASE\PANCRELIPASE PROTEASE
     Indication: Rheumatoid arthritis
     Route: 048
     Dates: start: 20220101

REACTIONS (4)
  - Aspiration [Not Recovered/Not Resolved]
  - Constipation [Unknown]
  - Eructation [Unknown]
  - Vomiting [Unknown]
